FAERS Safety Report 7878854-6 (Version None)
Quarter: 2011Q4

REPORT INFORMATION
  Report Type: 
  Country: None (occurrence: None)
  Receive Date: 20111024
  Receipt Date: 20110921
  Transmission Date: 20120403
  Serious: Yes (Other)
  Sender: FDA-Public Use
  Company Number: AMAG201100196

PATIENT
  Age: 43 Year
  Sex: Female
  Weight: 80.7 kg

DRUGS (3)
  1. SUCRALFATE [Concomitant]
  2. OMEPRAZOLE [Concomitant]
  3. FERAHEME [Suspect]
     Indication: IRON DEFICIENCY ANAEMIA
     Dosage: , INTRAVENOUS
     Route: 042
     Dates: start: 20110920, end: 20110920

REACTIONS (5)
  - FLUSHING [None]
  - PRESYNCOPE [None]
  - CHEST DISCOMFORT [None]
  - DYSPNOEA [None]
  - ANAPHYLACTOID REACTION [None]
